FAERS Safety Report 20045182 (Version 2)
Quarter: 2021Q4

REPORT INFORMATION
  Report Type: Spontaneous
  Country: IN (occurrence: IN)
  Receive Date: 20211108
  Receipt Date: 20211112
  Transmission Date: 20220303
  Serious: Yes (Other)
  Sender: FDA-Public Use
  Company Number: IN-SA-2021SA365981

PATIENT
  Age: 30 Year
  Sex: Female

DRUGS (2)
  1. ENOXAPARIN SODIUM [Suspect]
     Active Substance: ENOXAPARIN SODIUM
     Dosage: THERAPEUTIC DOSES
  2. METHYLPREDNISOLONE [Concomitant]
     Active Substance: METHYLPREDNISOLONE
     Dosage: 1 G, QD
     Route: 042

REACTIONS (6)
  - Renal haemorrhage [Recovering/Resolving]
  - Flank pain [Recovering/Resolving]
  - Dizziness [Recovering/Resolving]
  - Costovertebral angle tenderness [Recovering/Resolving]
  - Subcapsular renal haematoma [Recovering/Resolving]
  - Retroperitoneal haemorrhage [Recovering/Resolving]
